FAERS Safety Report 5702521-8 (Version None)
Quarter: 2008Q2

REPORT INFORMATION
  Report Type: 
  Country: None (occurrence: None)
  Receive Date: 20080411
  Receipt Date: 20070510
  Transmission Date: 20081010
  Serious: No
  Sender: FDA-Public Use
  Company Number: US-ASTRAZENECA-2007UW11192

PATIENT
  Sex: Female

DRUGS (2)
  1. TENORMIN [Suspect]
     Indication: HYPERTENSION
     Route: 048
     Dates: end: 20070501
  2. TENORMIN [Suspect]
     Route: 048
     Dates: start: 20070501

REACTIONS (1)
  - RED BLOOD CELL COUNT INCREASED [None]
